FAERS Safety Report 7949429-5 (Version None)
Quarter: 2011Q4

REPORT INFORMATION
  Report Type: 
  Country: None (occurrence: None)
  Receive Date: 20111130
  Receipt Date: 20111123
  Transmission Date: 20120403
  Serious: Yes (Death)
  Sender: FDA-Public Use
  Company Number: US-GLAXOSMITHKLINE-A0955758A

PATIENT
  Age: 56 Year
  Sex: Female

DRUGS (6)
  1. TYKERB [Suspect]
     Indication: BREAST CANCER
     Dosage: 1250MG PER DAY
     Route: 048
     Dates: start: 20110818
  2. NEXIUM [Concomitant]
  3. ALLOPURINOL [Concomitant]
  4. VICODIN [Concomitant]
  5. MILK OF MAGNESIA TAB [Concomitant]
  6. LISINOPRIL [Concomitant]

REACTIONS (1)
  - DEATH [None]
